FAERS Safety Report 6907179-8 (Version None)
Quarter: 2010Q3

REPORT INFORMATION
  Report Type: 
  Country: None (occurrence: None)
  Receive Date: 20100804
  Receipt Date: 20100725
  Transmission Date: 20110219
  Serious: Yes (Other)
  Sender: FDA-Public Use
  Company Number: JP-ELI_LILLY_AND_COMPANY-JP201003004634

PATIENT
  Sex: Female
  Weight: 49 kg

DRUGS (13)
  1. ALIMTA [Suspect]
     Indication: PLEURAL MESOTHELIOMA MALIGNANT
     Dosage: 500 MG, OTHER
     Route: 042
     Dates: start: 20091016, end: 20091016
  2. ALIMTA [Suspect]
     Dosage: 700 MG, OTHER
     Route: 042
     Dates: start: 20091106, end: 20100310
  3. GEMZAR [Suspect]
     Indication: PLEURAL MESOTHELIOMA MALIGNANT
     Dosage: UNK, UNK
     Route: 042
     Dates: start: 20100101
  4. CISPLATIN [Concomitant]
     Indication: PLEURAL MESOTHELIOMA MALIGNANT
     Dosage: 80 MG, OTHER
     Route: 042
     Dates: start: 20091016, end: 20100310
  5. PARAPLATIN [Concomitant]
     Indication: PLEURAL MESOTHELIOMA MALIGNANT
     Dosage: UNK, UNK
     Route: 042
     Dates: start: 20100101
  6. DECADRON /00016002/ [Concomitant]
     Indication: PROPHYLAXIS
     Dosage: 6.6 MG, ON THE DAY PEMETREXED INJECTION
     Dates: start: 20091016, end: 20100310
  7. OXYCONTIN [Concomitant]
     Indication: CANCER PAIN
     Dosage: UNK, UNK
     Route: 048
     Dates: start: 20100101
  8. MOBIC [Concomitant]
     Indication: CANCER PAIN
     Route: 048
  9. PANVITAN [Concomitant]
     Indication: PROPHYLAXIS
     Dosage: 1 G, DAILY (1/D)
     Route: 048
     Dates: start: 20091008
  10. METHYCOBAL [Concomitant]
     Dosage: 1000 UG, UNK
     Route: 030
     Dates: start: 20091008
  11. PACIF [Concomitant]
     Indication: CANCER PAIN
     Dosage: 30 MG, UNK
     Route: 048
     Dates: start: 20100101
  12. MEXITIL [Concomitant]
     Indication: CHEST DISCOMFORT
     Dates: start: 20100201
  13. ZOFRAN [Concomitant]
     Indication: PROPHYLAXIS
     Dosage: 3.3 MG, UNK
     Dates: start: 20100310, end: 20100310

REACTIONS (8)
  - DRUG HYPERSENSITIVITY [None]
  - ECZEMA [None]
  - ERYTHEMA [None]
  - HYPERSENSITIVITY [None]
  - OFF LABEL USE [None]
  - PRURITUS [None]
  - RASH [None]
  - RASH PRURITIC [None]
